FAERS Safety Report 15561715 (Version 1)
Quarter: 2018Q4

REPORT INFORMATION
  Report Type: Spontaneous
  Country: CN (occurrence: CN)
  Receive Date: 20181029
  Receipt Date: 20181029
  Transmission Date: 20190205
  Serious: Yes (Hospitalization)
  Sender: FDA-Public Use
  Company Number: CN-ELI_LILLY_AND_COMPANY-CN201810012763

PATIENT
  Age: 78 Year
  Sex: Male
  Weight: 65 kg

DRUGS (3)
  1. HUMULIN 70/30 [Suspect]
     Active Substance: INSULIN HUMAN
     Dosage: 8 U, EACH AFTERNOON
     Route: 058
     Dates: start: 2008
  2. HUMULIN 70/30 [Suspect]
     Active Substance: INSULIN HUMAN
     Dosage: 12 U, EACH EVENING
     Route: 058
     Dates: start: 2008
  3. HUMULIN 70/30 [Suspect]
     Active Substance: INSULIN HUMAN
     Indication: DIABETES MELLITUS
     Dosage: 16 U, EACH MORNING
     Route: 058
     Dates: start: 2008

REACTIONS (2)
  - Diabetes mellitus inadequate control [Unknown]
  - Pneumonia [Recovered/Resolved]
